FAERS Safety Report 8972224 (Version 1)
Quarter: 2012Q4

REPORT INFORMATION
  Report Type: Spontaneous
  Country: US (occurrence: None)
  Receive Date: 20121217
  Receipt Date: 20121217
  Transmission Date: 20130627
  Serious: Yes (Disabling)
  Sender: FDA-Public Use
  Company Number: None

PATIENT
  Sex: Female
  Weight: 54.43 kg

DRUGS (1)
  1. BUPROPION [Suspect]
     Indication: DEPRESSION
     Dates: start: 2012

REACTIONS (2)
  - Depression [None]
  - Disease recurrence [None]
